FAERS Safety Report 4532443-X (Version None)
Quarter: 2004Q4

REPORT INFORMATION
  Report Type: 
  Country: None (occurrence: None)
  Receive Date: 20041217
  Receipt Date: 20041215
  Transmission Date: 20050328
  Serious: Yes (Other)
  Sender: FDA-Public Use
  Company Number: 163-20785-04120402

PATIENT
  Age: 83 Year
  Sex: Male

DRUGS (1)
  1. THALOMID [Suspect]
     Dosage: ORAL
     Route: 048

REACTIONS (1)
  - NO ADVERSE EFFECT [None]
